FAERS Safety Report 19473414 (Version 1)
Quarter: 2021Q2

REPORT INFORMATION
  Report Type: Spontaneous
  Country: FR (occurrence: FR)
  Receive Date: 20210629
  Receipt Date: 20210629
  Transmission Date: 20210717
  Serious: Yes (Hospitalization)
  Sender: FDA-Public Use
  Company Number: FR-BAYER-2021-161022

PATIENT
  Age: 56 Year
  Sex: Male

DRUGS (8)
  1. IRON OXIDES [Concomitant]
     Active Substance: FERRIC OXIDE RED
     Dosage: UNK
  2. SODIUM LAURYL SULPHATE [Concomitant]
     Active Substance: SODIUM LAURYL SULFATE
     Dosage: UNK
  3. MACROGOL 3350 [Concomitant]
     Active Substance: POLYETHYLENE GLYCOL 3350
     Dosage: UNK
  4. NEXAVAR [Suspect]
     Active Substance: SORAFENIB
     Indication: HEPATOCELLULAR CARCINOMA
     Dosage: UNK
  5. CROSCARMELLOSE SODIUM. [Concomitant]
     Active Substance: CROSCARMELLOSE SODIUM
     Dosage: UNK
  6. TITANIUM DIOXIDE. [Concomitant]
     Active Substance: TITANIUM DIOXIDE
     Dosage: UNK
  7. NEXAVAR [Suspect]
     Active Substance: SORAFENIB
     Indication: HEPATOCELLULAR CARCINOMA
     Dosage: 800 MG, QD
     Route: 048
     Dates: start: 202009, end: 20201113
  8. MICROCRYSTALLINE CELLULOSE [Concomitant]
     Active Substance: CELLULOSE, MICROCRYSTALLINE
     Dosage: UNK

REACTIONS (2)
  - Ventricular dysfunction [Not Recovered/Not Resolved]
  - Hypertension [Recovering/Resolving]

NARRATIVE: CASE EVENT DATE: 202011
